FAERS Safety Report 16435347 (Version 1)
Quarter: 2019Q2

REPORT INFORMATION
  Report Type: Spontaneous
  Country: US (occurrence: US)
  Receive Date: 20190614
  Receipt Date: 20190614
  Transmission Date: 20190711
  Serious: No
  Sender: FDA-Public Use
  Company Number: US-TEVA-2019-US-1053814

PATIENT
  Sex: Male

DRUGS (1)
  1. LIDOCAINE. [Suspect]
     Active Substance: LIDOCAINE
     Dosage: USED THE PRODUCT FOR 2 WEEKS
     Route: 061
     Dates: start: 20190502

REACTIONS (2)
  - Pain [Unknown]
  - Gait inability [Unknown]

NARRATIVE: CASE EVENT DATE: 20190502
